FAERS Safety Report 11616544 (Version 3)
Quarter: 2015Q4

REPORT INFORMATION
  Report Type: Report from Study
  Country: US (occurrence: US)
  Receive Date: 20151009
  Receipt Date: 20151125
  Transmission Date: 20160304
  Serious: Yes (Hospitalization, Other)
  Sender: FDA-Public Use
  Company Number: US-GILEAD-2015-0171202

PATIENT
  Age: 69 Year
  Sex: Male

DRUGS (1)
  1. IDELALISIB [Suspect]
     Active Substance: IDELALISIB
     Indication: NON-HODGKIN^S LYMPHOMA
     Dosage: 150 MG, BID
     Route: 048
     Dates: start: 20150312, end: 201509

REACTIONS (11)
  - Pruritus [Unknown]
  - Renal disorder [Unknown]
  - Chest discomfort [Unknown]
  - Dyspnoea [Unknown]
  - Dehydration [Unknown]
  - Diarrhoea [Unknown]
  - Erythema [Unknown]
  - Abdominal pain upper [Unknown]
  - Pruritus [Unknown]
  - Clostridium difficile infection [Unknown]
  - Food allergy [Unknown]

NARRATIVE: CASE EVENT DATE: 201509
